FAERS Safety Report 4789444-6 (Version None)
Quarter: 2005Q4

REPORT INFORMATION
  Report Type: 
  Country: None (occurrence: None)
  Receive Date: 20051005
  Receipt Date: 20051005
  Transmission Date: 20060501
  Serious: Yes (Life-Threatening)
  Sender: FDA-Public Use
  Company Number: None

PATIENT
  Age: 54 Year
  Sex: Female
  Weight: 74 kg

DRUGS (20)
  1. HEPARIN [Suspect]
     Indication: PROPHYLAXIS
     Dosage: 400 UNITS/HR
     Dates: start: 20050413
  2. AMIODARONE [Concomitant]
  3. ASPIRIN [Concomitant]
  4. CARVEDILOL [Concomitant]
  5. INSULIN [Concomitant]
  6. DIGOXIN [Concomitant]
  7. CONJUGATED ESTROGEN [Concomitant]
  8. FUROSEMIDE [Concomitant]
  9. LANSOPRAZOLE [Concomitant]
  10. LEVOTHYROXINE [Concomitant]
  11. LEVOFLOXACIN [Concomitant]
  12. ALUMINUM HYDROXIDE AND MAGNESIUM TRISILICATE [Concomitant]
  13. MORPHINE [Concomitant]
  14. LESACOL [Concomitant]
  15. POTASSIUM CHLORIDE [Concomitant]
  16. SENNA [Concomitant]
  17. EPINEPHRINE [Concomitant]
  18. MILRINONE [Concomitant]
  19. NICARDIPINE HCL [Concomitant]
  20. NOREPINEPHRINE [Concomitant]

REACTIONS (5)
  - BLOOD PRESSURE SYSTOLIC INCREASED [None]
  - BRAIN STEM HAEMORRHAGE [None]
  - FACIAL PALSY [None]
  - HEMIPARESIS [None]
  - SPEECH DISORDER [None]
